FAERS Safety Report 19120834 (Version 1)
Quarter: 2021Q2

REPORT INFORMATION
  Report Type: Spontaneous
  Country: IT (occurrence: IT)
  Receive Date: 20210412
  Receipt Date: 20210412
  Transmission Date: 20210717
  Serious: Yes (Hospitalization)
  Sender: FDA-Public Use
  Company Number: NVSC2021IT077321

PATIENT
  Age: 15 Year
  Sex: Female

DRUGS (2)
  1. METFORMIN [Suspect]
     Active Substance: METFORMIN HYDROCHLORIDE
     Indication: SUBSTANCE ABUSE
     Dosage: 7000 MG (TOTAL)
     Route: 048
     Dates: start: 20210317, end: 20210317
  2. GABAPENTIN. [Suspect]
     Active Substance: GABAPENTIN
     Indication: SUBSTANCE ABUSE
     Dosage: 1900 MG (TOTAL)
     Route: 048
     Dates: start: 20210317, end: 20210317

REACTIONS (1)
  - Psychomotor hyperactivity [Recovering/Resolving]

NARRATIVE: CASE EVENT DATE: 20210317
